FAERS Safety Report 6736804-X (Version None)
Quarter: 2010Q2

REPORT INFORMATION
  Report Type: 
  Country: None (occurrence: None)
  Receive Date: 20100521
  Receipt Date: 20100512
  Transmission Date: 20101027
  Serious: Yes (Hospitalization)
  Sender: FDA-Public Use
  Company Number: MW-ABBOTT-10P-100-0644197-00

PATIENT
  Sex: Female
  Weight: 68 kg

DRUGS (4)
  1. ALUVIA TABLETS [Suspect]
     Indication: PROPHYLAXIS AGAINST HIV INFECTION
     Dosage: 400/100 MG
     Route: 048
     Dates: start: 20100309
  2. LAMIVUDINE + ZIDOVUDINE [Concomitant]
     Indication: PROPHYLAXIS AGAINST HIV INFECTION
     Dosage: 150/300MG
     Route: 048
     Dates: start: 20100309
  3. FERROUS SULFATE TAB [Concomitant]
     Indication: ANAEMIA OF PREGNANCY
     Route: 048
     Dates: end: 20100510
  4. FERROUS SULFATE TAB [Concomitant]
     Indication: PROPHYLAXIS

REACTIONS (1)
  - ABORTION INCOMPLETE [None]
